FAERS Safety Report 7962028-4 (Version None)
Quarter: 2011Q4

REPORT INFORMATION
  Report Type: 
  Country: None (occurrence: None)
  Receive Date: 20111121
  Receipt Date: 20111017
  Transmission Date: 20120403
  Serious: No
  Sender: FDA-Public Use
  Company Number: 1000024037

PATIENT
  Age: 70 Year
  Sex: Female

DRUGS (3)
  1. VIIBRYD [Suspect]
     Dosage: ORAL; 40 MG (40 MG, 1 IN 1 D), ORAL
     Route: 048
     Dates: start: 20110911
  2. WELLBUTRIN SR [Suspect]
     Dosage: 150 MG (150 MG, 1 IN 1 D)
     Dates: end: 20110912
  3. XANAX [Suspect]
     Dosage: 0.25 MG (0.25 MG, 1 IN 1 D),
     Dates: start: 20111010

REACTIONS (4)
  - DYSKINESIA [None]
  - DIARRHOEA [None]
  - FATIGUE [None]
  - TREMOR [None]
